FAERS Safety Report 7630892-4 (Version None)
Quarter: 2011Q3

REPORT INFORMATION
  Report Type: 
  Country: None (occurrence: None)
  Receive Date: 20110724
  Receipt Date: 20110711
  Transmission Date: 20111222
  Serious: Yes (Hospitalization)
  Sender: FDA-Public Use
  Company Number: DE-MYLANLABS-2011S1014382

PATIENT
  Age: 62 Year
  Sex: Female

DRUGS (25)
  1. CLOZAPINE [Suspect]
     Route: 048
     Dates: start: 20110324
  2. HALDOL [Suspect]
     Route: 048
     Dates: start: 20110323
  3. HALDOL [Suspect]
     Route: 048
     Dates: start: 20110328
  4. LEVOTHYROXINE SODIUM [Concomitant]
     Indication: PRODUCT USED FOR UNKNOWN INDICATION
     Route: 048
  5. CLOZAPINE [Suspect]
     Route: 048
     Dates: start: 20110329
  6. HALDOL [Suspect]
     Route: 048
     Dates: start: 20110329
  7. GASTROZEPIN [Concomitant]
     Indication: PRODUCT USED FOR UNKNOWN INDICATION
     Route: 048
  8. CLOZAPINE [Suspect]
     Route: 048
     Dates: start: 20110330, end: 20110331
  9. CLOZAPINE [Suspect]
     Dosage: 250-400 MG
     Route: 048
     Dates: start: 20110405
  10. DIAZEPAM [Concomitant]
     Route: 048
     Dates: start: 20110329, end: 20110330
  11. CLOZAPINE [Suspect]
     Route: 048
     Dates: start: 20110325, end: 20110327
  12. HALDOL [Suspect]
     Route: 048
     Dates: start: 20110324, end: 20110325
  13. HALDOL [Suspect]
     Route: 048
     Dates: start: 20110326, end: 20110327
  14. HALDOL [Suspect]
     Indication: PRODUCT USED FOR UNKNOWN INDICATION
     Route: 048
     Dates: start: 20110321, end: 20110322
  15. JODID [Concomitant]
     Indication: PRODUCT USED FOR UNKNOWN INDICATION
     Route: 048
  16. CLOZAPINE [Suspect]
     Route: 048
     Dates: start: 20110328
  17. CLOZAPINE [Suspect]
     Route: 048
     Dates: start: 20110401, end: 20110411
  18. DIAZEPAM [Concomitant]
     Route: 048
     Dates: start: 20110401
  19. AMITRIPTYLINE HCL [Concomitant]
     Indication: PRODUCT USED FOR UNKNOWN INDICATION
     Route: 048
  20. AKINETON /00079501/ [Concomitant]
     Indication: PRODUCT USED FOR UNKNOWN INDICATION
     Route: 048
  21. CLOZAPINE [Suspect]
     Indication: PRODUCT USED FOR UNKNOWN INDICATION
     Route: 048
     Dates: start: 20090901, end: 20110323
  22. LAMOTRIGINE [Concomitant]
     Indication: PRODUCT USED FOR UNKNOWN INDICATION
     Route: 048
  23. DIAZEPAM [Concomitant]
     Indication: PRODUCT USED FOR UNKNOWN INDICATION
     Route: 048
     Dates: start: 20110322, end: 20110328
  24. DIAZEPAM [Concomitant]
     Route: 048
     Dates: start: 20110402, end: 20110403
  25. SIMVASTATIN [Concomitant]
     Indication: PRODUCT USED FOR UNKNOWN INDICATION
     Route: 048

REACTIONS (1)
  - PLEUROTHOTONUS [None]
